FAERS Safety Report 26066656 (Version 2)
Quarter: 2025Q4

REPORT INFORMATION
  Report Type: Spontaneous
  Country: US (occurrence: US)
  Receive Date: 20251119
  Receipt Date: 20251121
  Transmission Date: 20260118
  Serious: No
  Sender: NOVO NORDISK
  Company Number: US-NOVOPROD-1513868

PATIENT
  Sex: Female

DRUGS (5)
  1. OZEMPIC [Suspect]
     Active Substance: SEMAGLUTIDE
     Indication: Type 2 diabetes mellitus
     Dosage: UNK
  2. OZEMPIC [Suspect]
     Active Substance: SEMAGLUTIDE
     Dosage: 1.0 MG
  3. OZEMPIC [Suspect]
     Active Substance: SEMAGLUTIDE
     Dosage: 2.0 MG
  4. TRESIBA [Suspect]
     Active Substance: INSULIN DEGLUDEC
     Indication: Product used for unknown indication
     Dosage: 70 TWICE A DAY
  5. NOVOLOG [Suspect]
     Active Substance: INSULIN ASPART
     Indication: Product used for unknown indication
     Dosage: 50 IU, TID

REACTIONS (9)
  - Palpitations [Recovered/Resolved]
  - Arthritis [Not Recovered/Not Resolved]
  - Fluid retention [Unknown]
  - Dysphagia [Recovered/Resolved]
  - Headache [Recovered/Resolved]
  - Feeding disorder [Recovered/Resolved]
  - Blood glucose decreased [Recovered/Resolved]
  - Constipation [Recovered/Resolved]
  - Injection site mass [Not Recovered/Not Resolved]
